FAERS Safety Report 8446023-7 (Version None)
Quarter: 2012Q2

REPORT INFORMATION
  Report Type: 
  Country: None (occurrence: None)
  Receive Date: 20120618
  Receipt Date: 20120604
  Transmission Date: 20120825
  Serious: Yes (Other)
  Sender: FDA-Public Use
  Company Number: US-BAYER-2012-057001

PATIENT
  Age: 40 Year
  Sex: Female
  Weight: 73 kg

DRUGS (2)
  1. RID MOUSSE [Suspect]
     Dosage: 8OZ, USED ONLY ONE TIME
     Route: 061
     Dates: start: 20120602, end: 20120602
  2. VITAMINS NOS [Concomitant]

REACTIONS (7)
  - NOCTURNAL DYSPNOEA [None]
  - OROPHARYNGEAL PAIN [None]
  - SKIN WRINKLING [None]
  - OROPHARYNGEAL DISCOMFORT [None]
  - EAR PAIN [None]
  - COUGH [None]
  - STICKY SKIN [None]
